FAERS Safety Report 16277920 (Version 1)
Quarter: 2019Q2

REPORT INFORMATION
  Report Type: Spontaneous
  Country: US (occurrence: US)
  Receive Date: 20190506
  Receipt Date: 20190506
  Transmission Date: 20190711
  Serious: Yes (Hospitalization, Other)
  Sender: FDA-Public Use
  Company Number: US-PFIZER INC-2019189319

PATIENT

DRUGS (2)
  1. IMATINIB. [Interacting]
     Active Substance: IMATINIB MESYLATE
     Indication: ACUTE LYMPHOCYTIC LEUKAEMIA
     Dosage: UNK, CYCLIC
  2. METHOTREXATE SODIUM. [Suspect]
     Active Substance: METHOTREXATE SODIUM
     Indication: ACUTE LYMPHOCYTIC LEUKAEMIA
     Dosage: UNK, CYCLIC (1ST CYCLE, HIGH-DOSE MTX, HD-MTX INFUSION)

REACTIONS (3)
  - Drug interaction [Unknown]
  - Acute kidney injury [Recovering/Resolving]
  - Mucosal inflammation [Unknown]
